FAERS Safety Report 20533544 (Version 1)
Quarter: 2022Q1

REPORT INFORMATION
  Report Type: Report from Study
  Country: IT (occurrence: IT)
  Receive Date: 20220301
  Receipt Date: 20220301
  Transmission Date: 20220423
  Serious: Yes (Death, Other)
  Sender: FDA-Public Use
  Company Number: IT-ABBVIE-22P-083-4292192-00

PATIENT
  Age: 46 Year
  Sex: Male
  Weight: 86 kg

DRUGS (8)
  1. VENETOCLAX [Suspect]
     Active Substance: VENETOCLAX
     Indication: T-cell type acute leukaemia
     Route: 048
     Dates: start: 20211009, end: 20211013
  2. NAVITOCLAX [Suspect]
     Active Substance: NAVITOCLAX
     Indication: T-cell type acute leukaemia
     Route: 048
     Dates: start: 20211011, end: 20211014
  3. COLISTIMETHATE SODIUM [Concomitant]
     Active Substance: COLISTIMETHATE SODIUM
     Indication: Sepsis
     Dosage: DOSE:  9 MUI: 4,5 MUI X 2
     Route: 042
     Dates: start: 20211011
  4. MEROPENEM [Concomitant]
     Active Substance: MEROPENEM
     Indication: Sepsis
     Route: 042
     Dates: start: 20211011
  5. TIGECYCLINE [Concomitant]
     Active Substance: TIGECYCLINE
     Indication: Sepsis
     Route: 042
     Dates: start: 20211011
  6. CLONIDINA [Concomitant]
     Indication: Hypertension
     Route: 058
     Dates: start: 20210926
  7. PANTOPRAZOLE SODIUM [Concomitant]
     Active Substance: PANTOPRAZOLE SODIUM
     Indication: Prophylaxis
     Route: 042
  8. FUROSEMIDE [Concomitant]
     Active Substance: FUROSEMIDE
     Indication: Prophylaxis
     Route: 042
     Dates: start: 20210924

REACTIONS (2)
  - Cerebral ischaemia [Fatal]
  - Hepatic function abnormal [Recovering/Resolving]

NARRATIVE: CASE EVENT DATE: 20211012
